FAERS Safety Report 7081986-6 (Version None)
Quarter: 2010Q4

REPORT INFORMATION
  Report Type: 
  Country: None (occurrence: None)
  Receive Date: 20101103
  Receipt Date: 20101027
  Transmission Date: 20110411
  Serious: Yes (Other)
  Sender: FDA-Public Use
  Company Number: US-PFIZER INC-2010136968

PATIENT
  Age: 67 Year
  Sex: Male
  Weight: 67.2 kg

DRUGS (4)
  1. BLINDED *NO SUBJECT DRUG [Suspect]
     Indication: RENAL CANCER
     Dosage: CYCLIC
     Route: 048
     Dates: start: 20090701
  2. BLINDED *PLACEBO [Suspect]
     Indication: RENAL CANCER
     Dosage: CYCLIC
     Route: 048
     Dates: start: 20090701
  3. BLINDED *SORAFENIB [Suspect]
     Indication: RENAL CANCER
     Dosage: CYCLIC
     Route: 048
     Dates: start: 20090701
  4. SUNITINIB MALATE [Suspect]
     Indication: RENAL CANCER
     Dosage: CYCLIC
     Route: 048
     Dates: start: 20090701

REACTIONS (1)
  - DYSARTHRIA [None]
